FAERS Safety Report 20578265 (Version 1)
Quarter: 2022Q1

REPORT INFORMATION
  Report Type: Spontaneous
  Country: US (occurrence: None)
  Receive Date: 20220310
  Receipt Date: 20220310
  Transmission Date: 20220424
  Serious: No
  Sender: FDA-Public Use
  Company Number: None

PATIENT
  Age: 64 Year
  Sex: Male
  Weight: 274 kg

DRUGS (1)
  1. NIRMATRELVIR\RITONAVIR [Suspect]
     Active Substance: NIRMATRELVIR\RITONAVIR
     Dates: start: 20220206, end: 20220208

REACTIONS (8)
  - Myalgia [None]
  - Urticaria [None]
  - Pruritus [None]
  - Chromaturia [None]
  - Gait disturbance [None]
  - Arthritis [None]
  - Drug interaction [None]
  - Insomnia [None]

NARRATIVE: CASE EVENT DATE: 20220208
